FAERS Safety Report 23882652 (Version 1)
Quarter: 2024Q2

REPORT INFORMATION
  Report Type: Spontaneous
  Country: ES (occurrence: ES)
  Receive Date: 20240522
  Receipt Date: 20240522
  Transmission Date: 20240715
  Serious: Yes (Other)
  Sender: FDA-Public Use
  Company Number: None

PATIENT
  Age: 74 Year
  Sex: Female

DRUGS (1)
  1. ZOLPIDEM TARTRATE [Suspect]
     Active Substance: ZOLPIDEM TARTRATE
     Dosage: 10 MG, QD
     Dates: start: 20170110

REACTIONS (3)
  - Restless legs syndrome [Unknown]
  - Sleep disorder [Unknown]
  - Somnambulism [Unknown]

NARRATIVE: CASE EVENT DATE: 20240423
